FAERS Safety Report 22115999 (Version 8)
Quarter: 2025Q2

REPORT INFORMATION
  Report Type: Spontaneous
  Country: US (occurrence: US)
  Receive Date: 20230320
  Receipt Date: 20250528
  Transmission Date: 20250717
  Serious: Yes (Other)
  Sender: PFIZER
  Company Number: US-PFIZER INC-PV202300051213

PATIENT
  Age: 77 Year
  Sex: Female

DRUGS (4)
  1. IBRANCE [Suspect]
     Active Substance: PALBOCICLIB
     Route: 048
     Dates: start: 20220802
  2. IBRANCE [Suspect]
     Active Substance: PALBOCICLIB
  3. NEURONTIN [Concomitant]
     Active Substance: GABAPENTIN
     Dosage: 200 MG, 3X/DAY (2 (200) TABLET)
     Route: 048
     Dates: start: 20220809
  4. EFFEXOR XR [Concomitant]
     Active Substance: VENLAFAXINE HYDROCHLORIDE
     Dosage: 37.5 MG, DAILY
     Route: 048
     Dates: start: 202112

REACTIONS (4)
  - Osteonecrosis of jaw [Recovering/Resolving]
  - Malignant neoplasm progression [Unknown]
  - Brain fog [Unknown]
  - Impaired healing [Recovering/Resolving]
